FAERS Safety Report 7522077-7 (Version None)
Quarter: 2011Q2

REPORT INFORMATION
  Report Type: 
  Country: None (occurrence: None)
  Receive Date: 20110603
  Receipt Date: 20110525
  Transmission Date: 20111010
  Serious: Yes (Other)
  Sender: FDA-Public Use
  Company Number: US-JNJFOC-20110410992

PATIENT
  Age: 49 Year
  Sex: Male
  Weight: 131.09 kg

DRUGS (3)
  1. PERCOCET [Concomitant]
     Indication: BREAKTHROUGH PAIN
     Dosage: 10 MG/325
     Route: 065
  2. ROXICODONE [Concomitant]
     Indication: BREAKTHROUGH PAIN
     Route: 065
  3. FENTANYL-100 [Suspect]
     Indication: PAIN
     Route: 062
     Dates: start: 20110101, end: 20110401

REACTIONS (1)
  - BURNING SENSATION [None]
